FAERS Safety Report 22916752 (Version 4)
Quarter: 2023Q4

REPORT INFORMATION
  Report Type: Spontaneous
  Country: US (occurrence: US)
  Receive Date: 20230907
  Receipt Date: 20231110
  Transmission Date: 20240109
  Serious: Yes (Death, Life-Threatening, Hospitalization, Disabling, Other)
  Sender: FDA-Public Use
  Company Number: US-PFIZER INC-202300294188

PATIENT
  Age: 89 Year
  Sex: Male

DRUGS (10)
  1. PAXLOVID [Suspect]
     Active Substance: NIRMATRELVIR\RITONAVIR
     Indication: COVID-19 treatment
     Dosage: UNK, [RENAL DOSE]
     Route: 048
     Dates: start: 20230125, end: 20230129
  2. ELIQUIS [Concomitant]
     Active Substance: APIXABAN
     Dosage: DAILY, STARTED MONTHS TO A YEAR OR SO PRIOR TO JAN2023
  3. ASPIRIN [Concomitant]
     Active Substance: ASPIRIN
     Dosage: UNK
     Dates: end: 202301
  4. METOPROLOL [Concomitant]
     Active Substance: METOPROLOL
     Dosage: FOR YEARS
  5. LASIX [Concomitant]
     Active Substance: FUROSEMIDE
     Indication: Renal failure
     Dosage: AS NEEDED, FOR A YEAR OR SO PRIOR TO JAN2023
  6. COLCHICINE [Concomitant]
     Active Substance: COLCHICINE
     Dosage: AS NEEDED, FOR YEARS
  7. ATORVASTATIN [Concomitant]
     Active Substance: ATORVASTATIN
     Dosage: 2X/WEEK, FOR A LONG TIME PRIOR TO JAN2023
  8. PLAVIX [Concomitant]
     Active Substance: CLOPIDOGREL BISULFATE
     Dosage: UNK
     Dates: start: 202303
  9. BUMEX [Concomitant]
     Active Substance: BUMETANIDE
     Dosage: STARTED IN MAR OR APR2023 (AFTER OR DURING THE MAR HOSPITALIZATION)
     Dates: start: 2023
  10. LISINOPRIL [Concomitant]
     Active Substance: LISINOPRIL
     Dosage: UNK

REACTIONS (15)
  - Blast cell crisis [Fatal]
  - White blood cell count increased [Fatal]
  - Platelet count increased [Fatal]
  - CALR gene mutation [Fatal]
  - Thrombocytosis [Fatal]
  - Leukocytosis [Fatal]
  - Renal failure [Fatal]
  - Cardiac failure [Unknown]
  - Dyspnoea [Unknown]
  - Neck pain [Unknown]
  - Back pain [Unknown]
  - Asthenia [Unknown]
  - Haemoglobin decreased [Unknown]
  - Myeloproliferative neoplasm [Unknown]
  - Fatigue [Unknown]

NARRATIVE: CASE EVENT DATE: 20230101
